FAERS Safety Report 7310123-5 (Version None)
Quarter: 2011Q1

REPORT INFORMATION
  Report Type: 
  Country: None (occurrence: None)
  Receive Date: 20110224
  Receipt Date: 20110215
  Transmission Date: 20110831
  Serious: No
  Sender: FDA-Public Use
  Company Number: US-PFIZER INC-2010148708

PATIENT
  Sex: Female
  Weight: 88 kg

DRUGS (9)
  1. AMARYL [Concomitant]
     Indication: TYPE 2 DIABETES MELLITUS
     Dosage: 2 MG, 2X/DAY
     Dates: start: 20090101
  2. AMARYL [Concomitant]
     Dosage: 8 MG, 1X/DAY
  3. METFORMIN HYDROCHLORIDE/SITAGLIPTIN [Concomitant]
     Indication: TYPE 2 DIABETES MELLITUS
     Dosage: 50/1000 MG, 2X/DAY
     Dates: start: 20090101
  4. METFORMIN HYDROCHLORIDE/SITAGLIPTIN [Concomitant]
     Dosage: 100/2000 DAILY
  5. LANTUS [Concomitant]
     Dosage: 40 UNITS, DAILY
     Dates: start: 20100101
  6. LEVOTHYROXINE [Concomitant]
     Dosage: 137 MCG, DAILY
  7. LIPITOR [Suspect]
     Indication: HYPERLIPIDAEMIA
  8. LIPITOR [Suspect]
     Indication: BLOOD CHOLESTEROL INCREASED
     Dosage: 40 MG, 1X/DAY AT BED TIME
     Route: 048
     Dates: start: 20100824, end: 20101101
  9. LANTUS [Concomitant]
     Indication: TYPE 2 DIABETES MELLITUS
     Dosage: 40 UNITS DAILY

REACTIONS (4)
  - VOMITING [None]
  - NAUSEA [None]
  - NERVOUSNESS [None]
  - BLOOD IRON DECREASED [None]
